FAERS Safety Report 17880963 (Version 3)
Quarter: 2020Q3

REPORT INFORMATION
  Report Type: Spontaneous
  Country: JP (occurrence: JP)
  Receive Date: 20200610
  Receipt Date: 20200807
  Transmission Date: 20201103
  Serious: Yes (Hospitalization, Other)
  Sender: FDA-Public Use
  Company Number: JP-009507513-2006JPN000181J

PATIENT
  Age: 88 Year
  Sex: Male

DRUGS (1)
  1. KEYTRUDA [Suspect]
     Active Substance: PEMBROLIZUMAB
     Indication: TRANSITIONAL CELL CARCINOMA
     Dosage: 200 MILLIGRAM, Q3W
     Route: 041
     Dates: start: 20190515, end: 2019

REACTIONS (4)
  - Pulmonary tuberculosis [Recovered/Resolved]
  - Pneumocystis jirovecii pneumonia [Unknown]
  - Tuberculous pleurisy [Recovering/Resolving]
  - Neuropathy peripheral [Unknown]

NARRATIVE: CASE EVENT DATE: 201906
